FAERS Safety Report 8801331 (Version 2)
Quarter: 2012Q4

REPORT INFORMATION
  Report Type: Report from Study
  Country: US (occurrence: US)
  Receive Date: 20120921
  Receipt Date: 20121025
  Transmission Date: 20130627
  Serious: Yes (Other)
  Sender: FDA-Public Use
  Company Number: US-ABBOTT-12P-163-0980264-00

PATIENT
  Sex: Female
  Weight: 95.79 kg

DRUGS (4)
  1. HUMIRA [Suspect]
     Indication: CROHN^S DISEASE
     Dosage: Four pens on day one
     Route: 058
     Dates: start: 20100514, end: 20100514
  2. HUMIRA [Suspect]
     Dosage: Two pens on day 15 as directed
     Route: 058
  3. HUMIRA [Suspect]
     Dates: end: 20111011
  4. METHOTREXATE [Suspect]
     Indication: PRODUCT USED FOR UNKNOWN INDICATION
     Dates: end: 201111

REACTIONS (1)
  - Grand mal convulsion [Recovered/Resolved]
